FAERS Safety Report 5532926-X (Version None)
Quarter: 2007Q4

REPORT INFORMATION
  Report Type: 
  Country: None (occurrence: None)
  Receive Date: 20071204
  Receipt Date: 20071123
  Transmission Date: 20080405
  Serious: Yes (Disabling, Other)
  Sender: FDA-Public Use
  Company Number: GB-WYE-G00668007

PATIENT
  Age: 13 Year

DRUGS (1)
  1. VENLAFAXIINE HCL [Suspect]
     Indication: DEPRESSION
     Route: 048
     Dates: start: 20070830, end: 20071101

REACTIONS (2)
  - ABDOMINAL RIGIDITY [None]
  - MUSCLE SPASMS [None]
